FAERS Safety Report 5958194-2 (Version None)
Quarter: 2008Q4

REPORT INFORMATION
  Report Type: 
  Country: None (occurrence: None)
  Receive Date: 20081117
  Receipt Date: 20081103
  Transmission Date: 20090506
  Serious: Yes (Hospitalization)
  Sender: FDA-Public Use
  Company Number: DSA_32632_2008

PATIENT
  Age: 78 Year
  Sex: Female

DRUGS (3)
  1. LORAZEPAM [Suspect]
     Indication: DRUG USE FOR UNKNOWN INDICATION
     Dosage: (DF)
     Dates: start: 20070101, end: 20080424
  2. HALOPERIDOL [Suspect]
     Indication: PSYCHOTIC DISORDER
     Dosage: (DF)
     Dates: start: 20070101, end: 20080424
  3. SEROQUEL [Suspect]
     Indication: PSYCHOTIC DISORDER
     Dosage: (DF)
     Dates: start: 20070101, end: 20080424

REACTIONS (2)
  - LOSS OF CONSCIOUSNESS [None]
  - SYNCOPE [None]
